FAERS Safety Report 6218241-X (Version None)
Quarter: 2009Q2

REPORT INFORMATION
  Report Type: 
  Country: None (occurrence: None)
  Receive Date: 20090608
  Receipt Date: 20090603
  Transmission Date: 20091009
  Serious: Yes (Death)
  Sender: FDA-Public Use
  Company Number: FR-BRISTOL-MYERS SQUIBB COMPANY-14648992

PATIENT
  Age: 48 Year
  Sex: Male

DRUGS (4)
  1. REYATAZ [Suspect]
     Indication: HIV INFECTION
     Dates: start: 20050907, end: 20090414
  2. ZIAGEN [Suspect]
     Indication: HIV INFECTION
     Dates: start: 20040401, end: 20060612
  3. KIVEXA [Suspect]
     Indication: HIV INFECTION
     Dates: start: 20060612, end: 20090414
  4. NORVIR [Suspect]
     Indication: HIV INFECTION
     Dates: start: 20040401, end: 20090414

REACTIONS (2)
  - CARDIO-RESPIRATORY ARREST [None]
  - MYOCARDIAL INFARCTION [None]
